FAERS Safety Report 20654379 (Version 1)
Quarter: 2022Q1

REPORT INFORMATION
  Report Type: Spontaneous
  Country: GR (occurrence: GR)
  Receive Date: 20220330
  Receipt Date: 20220330
  Transmission Date: 20220423
  Serious: Yes (Hospitalization, Other)
  Sender: FDA-Public Use
  Company Number: GR-GLAXOSMITHKLINE-GR2022EME054295

PATIENT

DRUGS (2)
  1. BELANTAMAB MAFODOTIN [Suspect]
     Active Substance: BELANTAMAB MAFODOTIN
     Indication: Product used for unknown indication
     Dosage: 2.5 MG/KG FOR THE FIRST 6-7 CYCLES
  2. BELANTAMAB MAFODOTIN [Suspect]
     Active Substance: BELANTAMAB MAFODOTIN
     Dosage: 1.9 MG/KG FOR THE LAST 2-3 CYCLES.

REACTIONS (1)
  - Venoocclusive liver disease [Unknown]
